FAERS Safety Report 13927324 (Version 3)
Quarter: 2019Q1

REPORT INFORMATION
  Report Type: Spontaneous
  Country: DK (occurrence: DK)
  Receive Date: 20170901
  Receipt Date: 20190227
  Transmission Date: 20190417
  Serious: Yes (Life-Threatening, Hospitalization, Other)
  Sender: FDA-Public Use
  Company Number: DK-NOVOPROD-561042

PATIENT
  Age: 48 Year
  Sex: Male

DRUGS (5)
  1. NOVORAPID [Suspect]
     Active Substance: INSULIN ASPART
     Indication: TYPE 2 DIABETES MELLITUS
     Dosage: 24 IU, QD
     Route: 065
  2. ISOPHANE INSULIN [Suspect]
     Active Substance: INSULIN NOS
     Indication: TYPE 2 DIABETES MELLITUS
     Dosage: 18 IU, QD
     Route: 065
  3. METOPROLOL. [Concomitant]
     Active Substance: METOPROLOL
     Indication: PRODUCT USED FOR UNKNOWN INDICATION
     Dosage: 200 MG, QD
     Route: 065
  4. FUROSEMIDE. [Suspect]
     Active Substance: FUROSEMIDE
     Indication: DIURETIC THERAPY
     Dosage: 180 MG, QD (HIGH DOSES )
     Route: 065
  5. LOSARTAN. [Concomitant]
     Active Substance: LOSARTAN
     Indication: PRODUCT USED FOR UNKNOWN INDICATION
     Dosage: 150 MG, QD
     Route: 065

REACTIONS (7)
  - Blood pressure increased [Recovered/Resolved]
  - Metabolic alkalosis [Recovered/Resolved]
  - Hypokalaemia [Recovered/Resolved]
  - Rhabdomyolysis [Recovered/Resolved]
  - Paralysis [Recovered/Resolved]
  - Hypomagnesaemia [Recovered/Resolved]
  - Quadriparesis [Recovered/Resolved]
